FAERS Safety Report 7817372-8 (Version None)
Quarter: 2011Q4

REPORT INFORMATION
  Report Type: 
  Country: None (occurrence: None)
  Receive Date: 20111017
  Receipt Date: 20111012
  Transmission Date: 20120403
  Serious: Yes (Hospitalization)
  Sender: FDA-Public Use
  Company Number: US-ROXANE LABORATORIES, INC.-2011-RO-01453RO

PATIENT
  Age: 46 Year
  Sex: Female

DRUGS (2)
  1. IPILIMUMAB [Suspect]
     Indication: MALIGNANT MELANOMA
     Route: 042
     Dates: start: 20110629, end: 20110907
  2. DEXAMETHASONE [Suspect]
     Indication: PITUITARY ENLARGEMENT
     Route: 048
     Dates: start: 20110824

REACTIONS (1)
  - ADRENAL INSUFFICIENCY [None]
